FAERS Safety Report 7599172-X (Version None)
Quarter: 2011Q3

REPORT INFORMATION
  Report Type: 
  Country: None (occurrence: None)
  Receive Date: 20110711
  Receipt Date: 20090331
  Transmission Date: 20111222
  Serious: Yes (Other)
  Sender: FDA-Public Use
  Company Number: US-BAYER-200914895NA

PATIENT
  Sex: Male
  Weight: 97.506 kg

DRUGS (26)
  1. MAGNEVIST [Suspect]
     Indication: NUCLEAR MAGNETIC RESONANCE IMAGING
     Dosage: UNK UNK, ONCE
     Dates: start: 20050622, end: 20050622
  2. PROHANCE [Suspect]
     Indication: NUCLEAR MAGNETIC RESONANCE IMAGING
  3. NEURONTIN [Concomitant]
  4. CELLCEPT [Concomitant]
  5. LISINOPRIL [Concomitant]
  6. MAGNEVIST [Suspect]
     Dosage: UNK
     Dates: start: 20050623, end: 20050623
  7. OMNISCAN [Suspect]
     Indication: NUCLEAR MAGNETIC RESONANCE IMAGING
     Dosage: UNK UNK, ONCE
     Dates: start: 19990828, end: 19990828
  8. MULTIHANCE [Suspect]
     Indication: NUCLEAR MAGNETIC RESONANCE IMAGING
  9. LIPITOR [Concomitant]
  10. PROVIGIL [Concomitant]
  11. NIFEREX-150 FORTE [Concomitant]
  12. CYCLOSPORINE [Concomitant]
  13. ACETYLSALICYLIC ACID SRT [Concomitant]
  14. CALCITRIOL [Concomitant]
  15. RENAGEL [Concomitant]
  16. OMNISCAN [Suspect]
     Indication: ANGIOGRAM
     Dosage: 0.1 MMOL/KG
     Dates: start: 20051010, end: 20051010
  17. OPTIMARK [Suspect]
     Indication: NUCLEAR MAGNETIC RESONANCE IMAGING
  18. PREDNISONE [Concomitant]
  19. OMNISCAN [Suspect]
     Dosage: 30 ML, ONCE
     Dates: start: 20060406, end: 20060406
  20. GADOLINIUM IN UNSPECIFIED DRUG [Suspect]
     Indication: NUCLEAR MAGNETIC RESONANCE IMAGING BRAIN
     Dosage: 0.1 MMOL/KG, ONCE
     Dates: start: 20051010
  21. VALTREX [Concomitant]
  22. SPIRONOLACTONE [Concomitant]
  23. METOPROLOL TARTRATE [Concomitant]
  24. MAGNEVIST [Suspect]
     Dosage: 0.1 MMOL/KG
     Dates: start: 20051010
  25. EPOGEN [Concomitant]
  26. COZAAR [Concomitant]

REACTIONS (9)
  - SKIN FIBROSIS [None]
  - JOINT STIFFNESS [None]
  - PAIN [None]
  - FIBROSIS [None]
  - JOINT RANGE OF MOTION DECREASED [None]
  - GENERAL PHYSICAL HEALTH DETERIORATION [None]
  - NEPHROGENIC SYSTEMIC FIBROSIS [None]
  - MOBILITY DECREASED [None]
  - MUSCULAR WEAKNESS [None]
